FAERS Safety Report 9286016 (Version 1)
Quarter: 2013Q2

REPORT INFORMATION
  Report Type: Spontaneous
  Country: FI (occurrence: FI)
  Receive Date: 20130513
  Receipt Date: 20130513
  Transmission Date: 20140414
  Serious: Yes (Death)
  Sender: FDA-Public Use
  Company Number: FI-ASTRAZENECA-2013SE32218

PATIENT
  Age: 20 Year
  Sex: Female
  Weight: 56 kg

DRUGS (4)
  1. ROPIVACAINE [Suspect]
     Indication: LABOUR PAIN
     Route: 008
  2. ROPIVACAINE [Suspect]
     Indication: LABOUR PAIN
     Route: 008
  3. FENTANYL [Suspect]
     Indication: LABOUR PAIN
     Route: 008
  4. FENTANYL [Suspect]
     Indication: LABOUR PAIN
     Route: 008

REACTIONS (4)
  - Overdose [Fatal]
  - Spinal anaesthesia [Fatal]
  - Loss of consciousness [Fatal]
  - Hypotension [Fatal]
